FAERS Safety Report 10003584 (Version 2)
Quarter: 2014Q2

REPORT INFORMATION
  Report Type: Report from Study
  Country: CA (occurrence: CA)
  Receive Date: 20140312
  Receipt Date: 20140509
  Transmission Date: 20141212
  Serious: No
  Sender: FDA-Public Use
  Company Number: PHHY2014CA029407

PATIENT
  Sex: Female
  Weight: 57 kg

DRUGS (9)
  1. ACLASTA/ZOLEDRONATE [Suspect]
     Indication: OSTEOPOROSIS
     Dosage: 5 MG/100ML
     Route: 042
     Dates: start: 20100329
  2. DIDROCAL [Concomitant]
     Dosage: 400 MG, DAILY
  3. EVISTA [Concomitant]
     Dosage: 670 MG, DAILY
  4. FORTEO [Concomitant]
     Dosage: 20 MG, DAILY
  5. MIACALCIN [Concomitant]
     Dosage: 200 UI, DAILY
  6. VITAMIN D [Concomitant]
     Dosage: 400 UI, BID
     Dates: start: 20100311
  7. CALCIUM [Concomitant]
     Dosage: 500 UKN, BID
     Dates: start: 20100311
  8. BISPHOSPHONATES [Concomitant]
     Dosage: UNK UKN, UNK
     Route: 048
  9. HORMONES NOS [Concomitant]

REACTIONS (1)
  - Bone density decreased [Unknown]
